FAERS Safety Report 16947077 (Version 2)
Quarter: 2019Q4

REPORT INFORMATION
  Report Type: Spontaneous
  Country: US (occurrence: US)
  Receive Date: 20191022
  Receipt Date: 20191030
  Transmission Date: 20200122
  Serious: No
  Sender: FDA-Public Use
  Company Number: US-PFIZER INC-2019455034

PATIENT
  Age: 66 Year
  Sex: Male

DRUGS (2)
  1. LYRICA [Suspect]
     Active Substance: PREGABALIN
     Indication: PROSTATE CANCER
  2. LYRICA [Suspect]
     Active Substance: PREGABALIN
     Indication: NEOPLASM MALIGNANT
     Dosage: 150 MG, 2X/DAY
     Route: 048

REACTIONS (6)
  - Pain [Unknown]
  - Product use in unapproved indication [Unknown]
  - Vomiting [Unknown]
  - Off label use [Unknown]
  - Withdrawal syndrome [Unknown]
  - Cold sweat [Unknown]

NARRATIVE: CASE EVENT DATE: 2019
